FAERS Safety Report 4953959-8 (Version None)
Quarter: 2006Q1

REPORT INFORMATION
  Report Type: 
  Country: None (occurrence: None)
  Receive Date: 20060321
  Receipt Date: 20060313
  Transmission Date: 20060701
  Serious: Yes (Other)
  Sender: FDA-Public Use
  Company Number: 200610338BVD

PATIENT

DRUGS (1)
  1. AVELOX [Suspect]

REACTIONS (1)
  - BLINDNESS UNILATERAL [None]
